FAERS Safety Report 13442381 (Version 3)
Quarter: 2017Q2

REPORT INFORMATION
  Report Type: Spontaneous
  Country: JP (occurrence: JP)
  Receive Date: 20170414
  Receipt Date: 20170619
  Transmission Date: 20170830
  Serious: Yes (Other)
  Sender: FDA-Public Use
  Company Number: JP-RECORDATI RARE DISEASES-JP-R13005-16-00325

PATIENT
  Age: 0 Day
  Sex: Female

DRUGS (4)
  1. RESPIA [Suspect]
     Active Substance: CAFFEINE
     Indication: INFANTILE APNOEA
     Route: 065
  2. INDOCIN [Suspect]
     Active Substance: INDOMETHACIN
     Indication: PRODUCT USED FOR UNKNOWN INDICATION
     Route: 041
     Dates: start: 20160930, end: 20160930
  3. INDOCIN [Concomitant]
     Active Substance: INDOMETHACIN
     Indication: PRODUCT USED FOR UNKNOWN INDICATION
     Route: 048
     Dates: start: 20161007
  4. INDOCIN [Suspect]
     Active Substance: INDOMETHACIN
     Route: 041
     Dates: start: 20161001

REACTIONS (1)
  - Gastric mucosal lesion [Recovered/Resolved]

NARRATIVE: CASE EVENT DATE: 20161004
